FAERS Safety Report 9418717 (Version 1)
Quarter: 2013Q3

REPORT INFORMATION
  Report Type: Not Available
  Country: US (occurrence: US)
  Receive Date: 20130725
  Receipt Date: 20130725
  Transmission Date: 20140515
  Serious: Yes (Other)
  Sender: FDA-Public Use
  Company Number: US-LUPIN PHARMACEUTICALS INC.-E2B_00001052

PATIENT
  Age: 73 Year
  Sex: Male
  Weight: 113.5 kg

DRUGS (4)
  1. LEVETIRACETAM IMMEDIATE-RELEASE TABLETS 500MG [Suspect]
     Indication: CONVULSION
     Dates: start: 20130614
  2. LEVETIRACETAM IMMEDIATE-RELEASE TABLETS 500MG [Suspect]
     Dates: end: 20130704
  3. PLAVIX [Concomitant]
     Indication: PRODUCT USED FOR UNKNOWN INDICATION
     Route: 065
  4. SIMVASTATIN [Concomitant]
     Indication: PRODUCT USED FOR UNKNOWN INDICATION
     Route: 065

REACTIONS (5)
  - Psychotic disorder [Unknown]
  - Hypersensitivity [Unknown]
  - Aphasia [Not Recovered/Not Resolved]
  - Hallucination [Not Recovered/Not Resolved]
  - Agitation [Not Recovered/Not Resolved]
